FAERS Safety Report 25603501 (Version 2)
Quarter: 2025Q3

REPORT INFORMATION
  Report Type: Report from Study
  Country: AU (occurrence: AU)
  Receive Date: 20250724
  Receipt Date: 20250805
  Transmission Date: 20251021
  Serious: Yes (Other)
  Sender: TAKEDA
  Company Number: AU-TAKEDA-2025TUS064874

PATIENT
  Age: 49 Year
  Sex: Male

DRUGS (25)
  1. HUMAN IMMUNOGLOBULIN G [Suspect]
     Active Substance: HUMAN IMMUNOGLOBULIN G
     Indication: Pyoderma gangrenosum
  2. HUMAN IMMUNOGLOBULIN G [Suspect]
     Active Substance: HUMAN IMMUNOGLOBULIN G
     Indication: Ulcer
  3. PREDNISOLONE [Suspect]
     Active Substance: PREDNISOLONE
     Indication: Pyoderma gangrenosum
     Dosage: UNK, UNK, QD
  4. PREDNISOLONE [Suspect]
     Active Substance: PREDNISOLONE
     Indication: Ulcer
  5. METHYLPREDNISOLONE [Suspect]
     Active Substance: METHYLPREDNISOLONE
     Indication: Pyoderma gangrenosum
     Dosage: 500 MILLIGRAM, QD
  6. METHYLPREDNISOLONE [Suspect]
     Active Substance: METHYLPREDNISOLONE
     Indication: Ulcer
  7. CYCLOSPORINE [Suspect]
     Active Substance: CYCLOSPORINE
     Indication: Pyoderma gangrenosum
     Dosage: 3.5 MILLIGRAM/KILOGRAM, QD
  8. CYCLOSPORINE [Suspect]
     Active Substance: CYCLOSPORINE
     Indication: Ulcer
  9. TACROLIMUS [Suspect]
     Active Substance: TACROLIMUS
     Indication: Pyoderma gangrenosum
     Dosage: 4 MILLIGRAM, QD
  10. TACROLIMUS [Suspect]
     Active Substance: TACROLIMUS
     Indication: Ulcer
     Dosage: 4 MILLIGRAM, Q12H
  11. MYCOPHENOLIC ACID [Suspect]
     Active Substance: MYCOPHENOLIC ACID
     Indication: Pyoderma gangrenosum
     Dosage: 2 MILLIGRAM, QD
  12. MYCOPHENOLIC ACID [Suspect]
     Active Substance: MYCOPHENOLIC ACID
     Indication: Ulcer
  13. INFLIXIMAB [Suspect]
     Active Substance: INFLIXIMAB
     Indication: Pyoderma gangrenosum
     Dosage: 750 MILLIGRAM, Q4WEEKS
  14. INFLIXIMAB [Suspect]
     Active Substance: INFLIXIMAB
     Indication: Ulcer
  15. USTEKINUMAB [Suspect]
     Active Substance: USTEKINUMAB
     Indication: Pyoderma gangrenosum
     Dosage: 300 MILLIGRAM, Q4WEEKS
  16. USTEKINUMAB [Suspect]
     Active Substance: USTEKINUMAB
     Indication: Ulcer
  17. ADALIMUMAB [Suspect]
     Active Substance: ADALIMUMAB
     Indication: Pyoderma gangrenosum
     Dosage: UNK UNK, 1/WEEK
  18. ADALIMUMAB [Suspect]
     Active Substance: ADALIMUMAB
     Indication: Ulcer
     Dosage: 40 MILLIGRAM, 1/WEEK
  19. ADALIMUMAB [Suspect]
     Active Substance: ADALIMUMAB
     Dosage: 80 MILLIGRAM, 1/WEEK
  20. ADALIMUMAB [Suspect]
     Active Substance: ADALIMUMAB
     Dosage: 160 MILLIGRAM, 1/WEEK
  21. SECUKINUMAB [Suspect]
     Active Substance: SECUKINUMAB
     Indication: Pyoderma gangrenosum
     Dosage: 300 MILLIGRAM, 1/WEEK
  22. SECUKINUMAB [Suspect]
     Active Substance: SECUKINUMAB
     Indication: Ulcer
     Dosage: 300 MILLIGRAM, Q4WEEKS
  23. SECUKINUMAB [Suspect]
     Active Substance: SECUKINUMAB
  24. CANAKINUMAB [Suspect]
     Active Substance: CANAKINUMAB
     Indication: Pyoderma gangrenosum
  25. CANAKINUMAB [Suspect]
     Active Substance: CANAKINUMAB
     Dosage: 300 MILLIGRAM, Q4WEEKS

REACTIONS (16)
  - Disease progression [Unknown]
  - Drug ineffective [Unknown]
  - Condition aggravated [Unknown]
  - Discharge [Unknown]
  - Drug ineffective for unapproved indication [Unknown]
  - Pseudomonas infection [Unknown]
  - Pyoderma gangrenosum [Unknown]
  - Skin infection [Unknown]
  - Skin warm [Unknown]
  - Erythema [Unknown]
  - Oedema [Unknown]
  - Pain [Unknown]
  - Pyrexia [Unknown]
  - Tachycardia [Unknown]
  - Treatment failure [Unknown]
  - Off label use [Unknown]
